FAERS Safety Report 10029621 (Version 1)
Quarter: 2014Q1

REPORT INFORMATION
  Report Type: Spontaneous
  Country: US (occurrence: None)
  Receive Date: 20140320
  Receipt Date: 20140320
  Transmission Date: 20141002
  Serious: Yes (Hospitalization)
  Sender: FDA-Public Use
  Company Number: None

PATIENT
  Age: 77 Year
  Sex: Female
  Weight: 90 kg

DRUGS (2)
  1. CARBOPLATIN [Suspect]
  2. TAXOL [Suspect]

REACTIONS (7)
  - Syncope [None]
  - Body temperature increased [None]
  - Urinary incontinence [None]
  - Faecal incontinence [None]
  - Neutrophil count decreased [None]
  - Bacterial test positive [None]
  - Infection [None]
